FAERS Safety Report 10025589 (Version 1)
Quarter: 2014Q1

REPORT INFORMATION
  Report Type: Spontaneous
  Country: US (occurrence: US)
  Receive Date: 20140320
  Receipt Date: 20140320
  Transmission Date: 20141002
  Serious: No
  Sender: FDA-Public Use
  Company Number: US-009507513-1403USA002190

PATIENT
  Age: 2 Year
  Sex: Male
  Weight: 15.87 kg

DRUGS (2)
  1. CLARITIN CHEWABLE TABLETS [Suspect]
     Indication: SINUS DISORDER
     Dosage: 10 MG, ONCE
     Route: 048
     Dates: start: 20140221
  2. CLARITIN CHEWABLE TABLETS [Suspect]
     Indication: RHINORRHOEA
     Dosage: 5 MG, QD
     Route: 048

REACTIONS (1)
  - Accidental overdose [Unknown]
